FAERS Safety Report 4305702-3 (Version None)
Quarter: 2004Q1

REPORT INFORMATION
  Report Type: 
  Country: None (occurrence: None)
  Receive Date: 20040223
  Receipt Date: 20031127
  Transmission Date: 20041129
  Serious: No
  Sender: FDA-Public Use
  Company Number: SU-2003-001931

PATIENT
  Age: 72 Year
  Sex: Female
  Weight: 83.9154 kg

DRUGS (8)
  1. BENICAR [Suspect]
     Indication: HYPERTENSION
     Dosage: 40 MG QD PO
     Route: 048
     Dates: start: 20031001
  2. COREG [Concomitant]
  3. LIPITOR [Concomitant]
  4. ALLEGRA [Concomitant]
  5. VIOXX [Concomitant]
  6. PRILOSEC [Concomitant]
  7. PREMARIN [Concomitant]
  8. ASPIRIN [Concomitant]

REACTIONS (2)
  - BLOOD PRESSURE DECREASED [None]
  - DIZZINESS [None]
